FAERS Safety Report 7902875-8 (Version None)
Quarter: 2011Q4

REPORT INFORMATION
  Report Type: 
  Country: None (occurrence: None)
  Receive Date: 20111107
  Receipt Date: 20111026
  Transmission Date: 20120403
  Serious: Yes (Hospitalization)
  Sender: FDA-Public Use
  Company Number: 2011CP000174

PATIENT
  Age: 55 Year
  Sex: Male

DRUGS (8)
  1. KLIPAL (ACETAMINOPHEN + CODEINE PHOSPHATE) (NO PREF. NAME) [Suspect]
     Dosage: 1 DOSAGE FORM;2/1 DAY; PO
     Route: 048
     Dates: start: 20110512, end: 20110523
  2. VALSARTAN  AND HYDROCHLOROTHIAZIDE [Concomitant]
  3. AMLODIPINE BESYLATE [Concomitant]
  4. AUGMENTIN '125' [Suspect]
     Dosage: 1 DOSAGE FORM; 3/1 DAY; IV
     Route: 042
     Dates: start: 20110524, end: 20110526
  5. ACETAMINOPHEN [Suspect]
     Dosage: 4 GRAM;L DAY;IV
     Route: 042
     Dates: start: 20110524
  6. GLYBURIDE [Concomitant]
  7. RAMIPRIL [Concomitant]
  8. ACECLOFENAC (ACECLOFENAC) [Suspect]
     Dosage: 1 00 MG;2/1 DAY;
     Dates: start: 20110512, end: 20110523

REACTIONS (2)
  - HEPATOTOXICITY [None]
  - CYTOLYTIC HEPATITIS [None]
